FAERS Safety Report 14206220 (Version 1)
Quarter: 2017Q4

REPORT INFORMATION
  Report Type: Report from Study
  Country: SE (occurrence: SE)
  Receive Date: 20171120
  Receipt Date: 20171120
  Transmission Date: 20180321
  Serious: Yes (Life-Threatening, Hospitalization, Other)
  Sender: FDA-Public Use
  Company Number: SE-BAYER-2017-217688

PATIENT
  Age: 31 Year
  Sex: Female

DRUGS (1)
  1. JAYDESS [Suspect]
     Active Substance: LEVONORGESTREL
     Indication: CONTRACEPTION
     Dosage: 14 MCG/24HR, CONT
     Route: 015
     Dates: start: 20151020, end: 20160531

REACTIONS (7)
  - Dizziness [None]
  - Myocardial infarction [None]
  - Muscle disorder [None]
  - Chest pain [None]
  - Acute myocardial infarction [None]
  - Cold sweat [None]
  - Wolff-Parkinson-White syndrome [None]

NARRATIVE: CASE EVENT DATE: 2016
